FAERS Safety Report 6643851-5 (Version None)
Quarter: 2010Q1

REPORT INFORMATION
  Report Type: 
  Country: None (occurrence: None)
  Receive Date: 20100316
  Receipt Date: 20100301
  Transmission Date: 20100710
  Serious: Yes (Hospitalization)
  Sender: FDA-Public Use
  Company Number: THQ2010A00645

PATIENT
  Age: 60 Year
  Sex: Male

DRUGS (3)
  1. ACTOS [Suspect]
     Indication: DRUG USE FOR UNKNOWN INDICATION
     Dosage: 30 MG (30 MG,1 IN 1 D) PER ORAL
     Route: 048
  2. METFORMIN (GLUCOPHAGE) [Concomitant]
  3. JANUVIA [Concomitant]

REACTIONS (1)
  - PULMONARY OEDEMA [None]
